FAERS Safety Report 7724312-9 (Version None)
Quarter: 2011Q3

REPORT INFORMATION
  Report Type: 
  Country: None (occurrence: None)
  Receive Date: 20110901
  Receipt Date: 20110823
  Transmission Date: 20111222
  Serious: Yes (Disabling)
  Sender: FDA-Public Use
  Company Number: BR-BAYER-2011-035046

PATIENT
  Age: 47 Year
  Sex: Male

DRUGS (3)
  1. UNKNOWN MEDICATION [Concomitant]
     Indication: MUSCLE SPASMS
     Dosage: 1 DF, 5ID
     Route: 048
  2. INTERFERON BETA-1B [Suspect]
     Indication: MULTIPLE SCLEROSIS
     Dosage: 1 ML, QOD
     Route: 058
     Dates: start: 20060101
  3. TANDRILAX [Concomitant]
     Indication: BONE PAIN
     Dosage: 1 DF, QOD
     Route: 048

REACTIONS (9)
  - FORMICATION [None]
  - PARAPLEGIA [None]
  - TINNITUS [None]
  - INJECTION SITE PRURITUS [None]
  - DYSPNOEA [None]
  - INJECTION SITE DISCOLOURATION [None]
  - MULTIPLE SCLEROSIS [None]
  - MUSCULAR WEAKNESS [None]
  - MUSCLE SPASMS [None]
